FAERS Safety Report 9132566 (Version 1)
Quarter: 2013Q1

REPORT INFORMATION
  Report Type: Spontaneous
  Country: US (occurrence: US)
  Receive Date: 20130120
  Receipt Date: 20130120
  Transmission Date: 20140127
  Serious: No
  Sender: FDA-Public Use
  Company Number: US-ALLERGAN-1212371US

PATIENT
  Age: 60 Year
  Sex: Female

DRUGS (2)
  1. BOTOX COSMETIC [Suspect]
     Indication: SKIN WRINKLING
     Dosage: UNK UNK, SINGLE
     Dates: start: 201208, end: 201208
  2. BOTOX COSMETIC [Suspect]
     Dosage: UNK, SINGLE

REACTIONS (3)
  - Lip disorder [Recovering/Resolving]
  - Speech disorder [Recovering/Resolving]
  - Facial paresis [Recovering/Resolving]
